FAERS Safety Report 14080860 (Version 1)
Quarter: 2017Q4

REPORT INFORMATION
  Report Type: Spontaneous
  Country: US (occurrence: US)
  Receive Date: 20171012
  Receipt Date: 20171012
  Transmission Date: 20180321
  Serious: No
  Sender: FDA-Public Use
  Company Number: US-BAYER-2017-183933

PATIENT
  Age: 11 Year
  Sex: Female
  Weight: 43 kg

DRUGS (4)
  1. CLARITIN [Suspect]
     Active Substance: LORATADINE
     Indication: NASOPHARYNGITIS
  2. CLARITIN [Suspect]
     Active Substance: LORATADINE
     Indication: HYPERSENSITIVITY
     Dosage: 2 DF, QD
     Route: 048
  3. CLARITIN [Suspect]
     Active Substance: LORATADINE
     Indication: NASOPHARYNGITIS
  4. CLARITIN [Suspect]
     Active Substance: LORATADINE
     Indication: HYPERSENSITIVITY
     Dosage: 2 DF, QD
     Route: 048
     Dates: start: 20170915, end: 20170925

REACTIONS (5)
  - Drug ineffective [Unknown]
  - Pruritus [Not Recovered/Not Resolved]
  - Product use issue [Recovered/Resolved]
  - Rash [Not Recovered/Not Resolved]
  - Rash [None]

NARRATIVE: CASE EVENT DATE: 201709
